FAERS Safety Report 4895650-2 (Version None)
Quarter: 2005Q4

REPORT INFORMATION
  Report Type: 
  Country: None (occurrence: None)
  Receive Date: 20051215
  Receipt Date: 20050609
  Transmission Date: 20060501
  Serious: Yes (Hospitalization, Other)
  Sender: FDA-Public Use
  Company Number: 2005071783

PATIENT
  Age: 75 Year
  Sex: Female
  Weight: 97.5234 kg

DRUGS (5)
  1. BEXTRA [Suspect]
     Indication: ARTHRITIS
     Dosage: 40 MG (20 MG, 2 IN 1 D), ORAL
     Route: 048
     Dates: start: 20030101, end: 20040101
  2. ROFECOXIB [Concomitant]
  3. LEVOTHYROXINE SODIUM [Concomitant]
  4. CHLORTALIDONE (CHLORTALIDONE) [Concomitant]
  5. LISINOPRIL [Concomitant]

REACTIONS (2)
  - PAIN [None]
  - VENTRICULAR FIBRILLATION [None]
